FAERS Safety Report 8568227 (Version 2)
Quarter: 2014Q1

REPORT INFORMATION
  Report Type: Spontaneous
  Country: US (occurrence: None)
  Receive Date: 20120323
  Receipt Date: 20130305
  Transmission Date: 20141002
  Serious: Yes (Other)
  Sender: FDA-Public Use
  Company Number: 163-21880-11040832

PATIENT
  Age: 68 Year
  Sex: Female

DRUGS (5)
  1. REVLIMID [Suspect]
     Indication: PLASMA CELL MYELOMA
     Dosage: 25 MG, 1 IN 1 D, PO
     Route: 048
     Dates: start: 20100916, end: 201207
  2. DEXAMETHASONE [Suspect]
     Indication: PRODUCT USED FOR UNKNOWN INDICATION
  3. BENEFIBER (POLYCARBOPHIL CALCIUM) (UNKNOWN) [Concomitant]
  4. MULTIVITAMINS (MULTIVITAMINS) (UNKNOWN) [Concomitant]
  5. OMEGA 3 (FISH OIL) (UNKNOWN) [Concomitant]

REACTIONS (11)
  - Oedema peripheral [None]
  - Abdominal pain upper [None]
  - Flatulence [None]
  - Skin discolouration [None]
  - Diarrhoea [None]
  - Rash [None]
  - Constipation [None]
  - Hypoaesthesia [None]
  - Abdominal distension [None]
  - Drug dose omission [None]
  - Nail discolouration [None]
